FAERS Safety Report 8249321-5 (Version None)
Quarter: 2012Q1

REPORT INFORMATION
  Report Type: 
  Country: None (occurrence: None)
  Receive Date: 20120316
  Receipt Date: 20110712
  Transmission Date: 20120608
  Serious: No
  Sender: FDA-Public Use
  Company Number: PHHY2011US49040

PATIENT
  Age: 65 Year
  Sex: Female

DRUGS (2)
  1. ILARIS [Suspect]
     Indication: CRYOPYRIN ASSOCIATED PERIODIC SYNDROME
     Dosage: 150 MG EVERY 8 WEEKS, SUBCUTANEOUS
     Route: 058
     Dates: start: 20110401
  2. HYDROCHLOROTHIAZIDE [Concomitant]

REACTIONS (4)
  - INJECTION SITE PAIN [None]
  - NAUSEA [None]
  - VOMITING [None]
  - FOOD POISONING [None]
